FAERS Safety Report 6107971-6 (Version None)
Quarter: 2009Q1

REPORT INFORMATION
  Report Type: 
  Country: None (occurrence: None)
  Receive Date: 20090304
  Receipt Date: 20081112
  Transmission Date: 20090719
  Serious: Yes (Other)
  Sender: FDA-Public Use
  Company Number: US-002151

PATIENT
  Age: 53 Year
  Sex: Female
  Weight: 83 kg

DRUGS (1)
  1. ISOVUE-370 [Suspect]
     Indication: COMPUTERISED TOMOGRAM ABDOMEN
     Dosage: 80ML QD INTRAVENOUS
     Route: 042
     Dates: start: 20081112, end: 20081112

REACTIONS (1)
  - HYPERSENSITIVITY [None]
